FAERS Safety Report 10037775 (Version 1)
Quarter: 2014Q1

REPORT INFORMATION
  Report Type: Spontaneous
  Country: US (occurrence: None)
  Receive Date: 20140324
  Receipt Date: 20140324
  Transmission Date: 20141002
  Serious: Yes (Other)
  Sender: FDA-Public Use
  Company Number: 2014CT000025

PATIENT
  Sex: Female

DRUGS (1)
  1. KORLYM [Suspect]
     Indication: CUSHING^S SYNDROME
     Route: 048
     Dates: start: 20140304

REACTIONS (5)
  - Vaginal haemorrhage [None]
  - Muscle spasms [None]
  - Somnolence [None]
  - Fatigue [None]
  - Dizziness [None]
